FAERS Safety Report 11914725 (Version 2)
Quarter: 2016Q1

REPORT INFORMATION
  Report Type: Spontaneous
  Country: US (occurrence: US)
  Receive Date: 20160113
  Receipt Date: 20160122
  Transmission Date: 20160526
  Serious: No
  Sender: FDA-Public Use
  Company Number: US-TAKEDA-2016TUS000434

PATIENT
  Age: 66 Year
  Sex: Female
  Weight: 81.63 kg

DRUGS (6)
  1. SAPHRIS [Concomitant]
     Active Substance: ASENAPINE MALEATE
     Dosage: 20 MG, QD
  2. KEPPRA [Concomitant]
     Active Substance: LEVETIRACETAM
     Dosage: UNK, QID
  3. GABAPENTIN. [Concomitant]
     Active Substance: GABAPENTIN
  4. TRINTELLIX [Suspect]
     Active Substance: VORTIOXETINE HYDROBROMIDE
     Indication: DEPRESSION
     Dosage: UNK
     Route: 065
  5. WELLBUTRIN [Concomitant]
     Active Substance: BUPROPION HYDROCHLORIDE
     Dosage: 150 MG, TID
  6. TRINTELLIX [Suspect]
     Active Substance: VORTIOXETINE HYDROBROMIDE
     Indication: MAJOR DEPRESSION
     Dosage: 5 MG, UNK
     Route: 065
     Dates: start: 1996

REACTIONS (5)
  - Crying [Recovered/Resolved]
  - Irritability [Recovered/Resolved]
  - Condition aggravated [Recovered/Resolved]
  - Agitation [Unknown]
  - Anxiety [Recovered/Resolved]

NARRATIVE: CASE EVENT DATE: 20151029
